FAERS Safety Report 7472928-X (Version None)
Quarter: 2011Q1

REPORT INFORMATION
  Report Type: 
  Country: None (occurrence: None)
  Receive Date: 20110302
  Receipt Date: 20101122
  Transmission Date: 20110831
  Serious: Yes (Other)
  Sender: FDA-Public Use
  Company Number: 163-21880-10113014

PATIENT
  Age: 81 Year
  Sex: Female

DRUGS (9)
  1. NEXIUM [Concomitant]
  2. BENAZEPRIL/HCTZ (CIBADREX ^CIBA-GEIGY^) [Concomitant]
  3. ASPIRIN [Concomitant]
  4. CENTRUM SILVER (CENTRUM SILVER) [Concomitant]
  5. XANAX [Concomitant]
  6. REVLIMID [Suspect]
     Indication: MYELODYSPLASTIC SYNDROME
     Dosage: 10 MG, DAILY FOR 21 DAYS, PO; 5 MG, DAILY FOR 21 DAYS, PO; 5 MG, DAILY FOR 21 DAYS, PO
     Route: 048
     Dates: start: 20070910, end: 20100826
  7. REVLIMID [Suspect]
     Indication: MYELODYSPLASTIC SYNDROME
     Dosage: 10 MG, DAILY FOR 21 DAYS, PO; 5 MG, DAILY FOR 21 DAYS, PO; 5 MG, DAILY FOR 21 DAYS, PO
     Route: 048
     Dates: start: 20081101
  8. REVLIMID [Suspect]
     Indication: MYELODYSPLASTIC SYNDROME
     Dosage: 10 MG, DAILY FOR 21 DAYS, PO; 5 MG, DAILY FOR 21 DAYS, PO; 5 MG, DAILY FOR 21 DAYS, PO
     Route: 048
     Dates: start: 20080101
  9. LEXAPRO [Concomitant]

REACTIONS (3)
  - NO THERAPEUTIC RESPONSE [None]
  - JOINT SWELLING [None]
  - CONVULSION [None]
